FAERS Safety Report 12836985 (Version 2)
Quarter: 2016Q4

REPORT INFORMATION
  Report Type: Spontaneous
  Country: JP (occurrence: JP)
  Receive Date: 20161011
  Receipt Date: 20161122
  Transmission Date: 20170207
  Serious: Yes (Death)
  Sender: FDA-Public Use
  Company Number: JP-MALLINCKRODT-T201502562

PATIENT
  Age: 71 Year
  Sex: Male
  Weight: 63 kg

DRUGS (21)
  1. METHADONE [Suspect]
     Active Substance: METHADONE HYDROCHLORIDE
     Dosage: 20 MG (40 MG DAILY DOSE)
     Route: 048
     Dates: start: 20140307, end: 20140325
  2. CALONAL [Concomitant]
     Active Substance: ACETAMINOPHEN
     Indication: ANALGESIC THERAPY
     Dosage: 3600 MG
     Route: 048
     Dates: end: 20140128
  3. ALDACTONE A [Concomitant]
     Active Substance: SPIRONOLACTONE
     Dosage: UNK
     Route: 048
     Dates: start: 20131118, end: 20140324
  4. DECADRON [Concomitant]
     Active Substance: DEXAMETHASONE
     Dosage: 6.6 MG
     Route: 051
     Dates: start: 20131126, end: 20140114
  5. FENTOS [Concomitant]
     Active Substance: FENTANYL
     Indication: ANALGESIC THERAPY
     Dosage: 4 MG
     Route: 062
     Dates: end: 20131127
  6. METHADONE [Suspect]
     Active Substance: METHADONE HYDROCHLORIDE
     Dosage: 5 MG (15 MG DAILY DOSE)
     Route: 048
     Dates: start: 20131207, end: 20140111
  7. NEXIUM [Concomitant]
     Active Substance: ESOMEPRAZOLE MAGNESIUM
     Dosage: 20 MG
     Route: 048
     Dates: start: 20131106, end: 20140325
  8. GEMZAR [Concomitant]
     Active Substance: GEMCITABINE HYDROCHLORIDE
     Dosage: 900 MG
     Route: 051
     Dates: start: 20131126, end: 20140114
  9. MORPHINE HYDROCHLORIDE [Concomitant]
     Active Substance: MORPHINE HYDROCHLORIDE
     Dosage: 30 MG, PRN
     Route: 048
     Dates: start: 20131121
  10. SOLANAX [Concomitant]
     Active Substance: ALPRAZOLAM
     Dosage: 1.2 MG
     Route: 048
     Dates: start: 20130924, end: 20140121
  11. FENTOS [Concomitant]
     Active Substance: FENTANYL
     Dosage: 2 MG
     Route: 062
     Dates: start: 20131128, end: 20131205
  12. TRAZODONE [Concomitant]
     Active Substance: TRAZODONE HYDROCHLORIDE
     Dosage: 12.5 MG
     Route: 048
     Dates: start: 20130924, end: 20140131
  13. GRANISETRON [Concomitant]
     Active Substance: GRANISETRON
     Dosage: 3 MG
     Route: 051
     Dates: start: 20131126, end: 20140114
  14. METHADONE [Suspect]
     Active Substance: METHADONE HYDROCHLORIDE
     Indication: CANCER PAIN
     Dosage: 2.5 MG (7.5 MG DAILY DOSE)
     Route: 048
     Dates: start: 20131122, end: 20131129
  15. METHADONE [Suspect]
     Active Substance: METHADONE HYDROCHLORIDE
     Dosage: 5 MG (10 MG DAILY DOSE)
     Route: 048
     Dates: start: 20131129, end: 20131206
  16. PANTOSIN [Concomitant]
     Active Substance: PANTETHINE
     Dosage: 300 MG
     Route: 048
     Dates: start: 20131106, end: 20140204
  17. DOCETAXEL. [Concomitant]
     Active Substance: DOCETAXEL
     Dosage: 40 MG
     Route: 051
     Dates: start: 20131126, end: 20140114
  18. DECADRON [Concomitant]
     Active Substance: DEXAMETHASONE
     Dosage: 1 MG
     Route: 048
     Dates: start: 20131120, end: 20140128
  19. FUROSEMIDE. [Concomitant]
     Active Substance: FUROSEMIDE
     Dosage: 20 MG
     Route: 048
     Dates: end: 20140204
  20. METHADONE [Suspect]
     Active Substance: METHADONE HYDROCHLORIDE
     Dosage: 5 MG (20 MG DAILY DOSE)
     Route: 048
     Dates: start: 20140112, end: 20140202
  21. METHADONE [Suspect]
     Active Substance: METHADONE HYDROCHLORIDE
     Dosage: 10 MG (30 MG DAILY DOSE)
     Route: 048
     Dates: start: 20140203, end: 20140306

REACTIONS (3)
  - Bladder cancer [Fatal]
  - Palpitations [Recovered/Resolved]
  - Dyspnoea [Recovered/Resolved]

NARRATIVE: CASE EVENT DATE: 20131124
